FAERS Safety Report 8055813-4 (Version None)
Quarter: 2011Q4

REPORT INFORMATION
  Report Type: 
  Country: None (occurrence: None)
  Receive Date: 20111215
  Receipt Date: 20110519
  Transmission Date: 20120403
  Serious: Yes (Disabling)
  Sender: FDA-Public Use
  Company Number: 918609

PATIENT
  Age: 52 Year
  Sex: Female
  Weight: 49.4421 kg

DRUGS (7)
  1. METOCLOPRAMIDE [Suspect]
     Indication: DIABETIC GASTROPARESIS
     Dosage: INJECTION, OTHER
     Route: 050
     Dates: start: 20000612, end: 20000614
  2. METOCLOPRAMIDE [Suspect]
     Indication: DIABETIC GASTROPARESIS
     Dosage: ORAL
     Route: 048
     Dates: start: 20000612, end: 20000614
  3. METOCLOPRAMIDE [Suspect]
     Indication: DIABETIC GASTROPARESIS
     Dosage: ORAL
     Route: 048
     Dates: start: 20080102, end: 20080105
  4. METOCLOPRAMIDE [Suspect]
     Indication: DIABETIC GASTROPARESIS
     Dosage: ORAL
     Route: 048
     Dates: start: 20090116, end: 20090120
  5. REGLAN [Suspect]
     Indication: DIABETIC GASTROPARESIS
     Dosage: ORAL
     Route: 048
     Dates: start: 20070227, end: 20071202
  6. REGLAN [Suspect]
     Indication: DIABETIC GASTROPARESIS
     Dosage: ORAL
     Route: 048
     Dates: start: 20000428, end: 20020114
  7. REGLAN [Suspect]
     Indication: DIABETIC GASTROPARESIS
     Dosage: ORAL
     Route: 048
     Dates: start: 20081210

REACTIONS (1)
  - TARDIVE DYSKINESIA [None]
